FAERS Safety Report 5925189-4 (Version None)
Quarter: 2008Q4

REPORT INFORMATION
  Report Type: 
  Country: None (occurrence: None)
  Receive Date: 20081020
  Receipt Date: 20081020
  Transmission Date: 20090506
  Serious: Yes (Hospitalization, Other)
  Sender: FDA-Public Use
  Company Number: None

PATIENT
  Age: 46 Year
  Sex: Female
  Weight: 56.6996 kg

DRUGS (1)
  1. ADVIL [Suspect]
     Indication: HEADACHE
     Dosage: 2 TABLES NEVER TAKEN BEFORE OTHER (DURATION: 1 TIME, NEVER TAKEN BEFORE--)
     Route: 050
     Dates: start: 20081017, end: 20081017

REACTIONS (1)
  - DRUG HYPERSENSITIVITY [None]
